FAERS Safety Report 14655106 (Version 1)
Quarter: 2018Q1

REPORT INFORMATION
  Report Type: Spontaneous
  Country: PL (occurrence: PL)
  Receive Date: 20180319
  Receipt Date: 20180319
  Transmission Date: 20180509
  Serious: Yes (Life-Threatening, Hospitalization, Other)
  Sender: FDA-Public Use
  Company Number: PL-GLAXOSMITHKLINE-PL2018041466

PATIENT
  Age: 35 Year
  Sex: Female

DRUGS (4)
  1. CARBAMAZEPINE. [Suspect]
     Active Substance: CARBAMAZEPINE
     Indication: EPILEPSY
     Dosage: 100 MG, QD
     Route: 065
  2. SERTRALINE [Concomitant]
     Active Substance: SERTRALINE HYDROCHLORIDE
     Indication: DEPRESSION
     Dosage: 100 MG, QD
     Route: 065
  3. CARBAMAZEPINE. [Suspect]
     Active Substance: CARBAMAZEPINE
     Indication: DEPRESSION
  4. LAMOTRIGINE. [Suspect]
     Active Substance: LAMOTRIGINE
     Indication: EPILEPSY
     Dosage: UNK
     Route: 065

REACTIONS (16)
  - Drug reaction with eosinophilia and systemic symptoms [Unknown]
  - Pyrexia [Unknown]
  - Haemoglobin decreased [Recovered/Resolved]
  - Erythema [Recovering/Resolving]
  - Pruritus [Unknown]
  - Lymphopenia [Recovered/Resolved]
  - Chills [Unknown]
  - Skin lesion [Recovered/Resolved]
  - Skin burning sensation [Unknown]
  - Blister [Unknown]
  - Urticaria [Unknown]
  - Papule [Unknown]
  - Asthenia [Unknown]
  - Transaminases increased [Recovered/Resolved]
  - Haematocrit decreased [Recovered/Resolved]
  - Red blood cell count decreased [Recovered/Resolved]
